FAERS Safety Report 5038425-6 (Version None)
Quarter: 2006Q2

REPORT INFORMATION
  Report Type: 
  Country: None (occurrence: None)
  Receive Date: 20060626
  Receipt Date: 20060626
  Transmission Date: 20061013
  Serious: Yes (Disabling)
  Sender: FDA-Public Use
  Company Number: None

PATIENT
  Age: 52 Year
  Sex: Female
  Weight: 124.7392 kg

DRUGS (1)
  1. KETEK [Suspect]
     Indication: SINUSITIS
     Dosage: 1      3 X DAILY

REACTIONS (3)
  - APHTHOUS STOMATITIS [None]
  - IMPAIRED HEALING [None]
  - STOMATITIS [None]
